FAERS Safety Report 25823887 (Version 1)
Quarter: 2025Q3

REPORT INFORMATION
  Report Type: Spontaneous
  Country: EU (occurrence: EU)
  Receive Date: 20250919
  Receipt Date: 20250919
  Transmission Date: 20251020
  Serious: Yes (Disabling)
  Sender: OTSUKA
  Company Number: None

PATIENT
  Age: 24 Year
  Sex: Female
  Weight: 67 kg

DRUGS (1)
  1. ABILIFY [Suspect]
     Active Substance: ARIPIPRAZOLE
     Indication: Mood swings
     Route: 065
     Dates: start: 20160130, end: 20230605

REACTIONS (5)
  - Tooth erosion [Unknown]
  - Binge eating [Recovered/Resolved]
  - Vomiting [Recovered/Resolved]
  - Impulse-control disorder [Recovered/Resolved]
  - Economic problem [Recovered/Resolved]

NARRATIVE: CASE EVENT DATE: 20160215
